FAERS Safety Report 9068394 (Version 1)
Quarter: 2013Q1

REPORT INFORMATION
  Report Type: Spontaneous
  Country: US (occurrence: US)
  Receive Date: 20130206
  Receipt Date: 20130206
  Transmission Date: 20140127
  Serious: No
  Sender: FDA-Public Use
  Company Number: US-009507513-1302USA001040

PATIENT
  Age: 21 Year
  Sex: Female

DRUGS (2)
  1. IMPLANON [Suspect]
     Indication: CONTRACEPTION
     Dosage: EVERY 3 YEARS
     Route: 059
     Dates: start: 20120423
  2. VYVANSE [Concomitant]
     Dosage: UNK

REACTIONS (3)
  - Depression [Unknown]
  - Mood swings [Unknown]
  - Acne [Unknown]
